FAERS Safety Report 4769899-3 (Version None)
Quarter: 2005Q3

REPORT INFORMATION
  Report Type: 
  Country: None (occurrence: None)
  Receive Date: 20050912
  Receipt Date: 20050425
  Transmission Date: 20060218
  Serious: Yes (Other)
  Sender: FDA-Public Use
  Company Number: US015150

PATIENT
  Sex: Male

DRUGS (14)
  1. GABITRIL [Suspect]
     Indication: SLEEP DISORDER
     Dosage: 2 MG ORAL
     Route: 048
     Dates: start: 20040401
  2. EFFEXOR [Concomitant]
  3. CRESTOR [Concomitant]
  4. TOPAMAX [Concomitant]
  5. ASPIRIN [Concomitant]
  6. ANDROGEL [Concomitant]
  7. DYNACIRC [Concomitant]
  8. DIAZEPAM [Concomitant]
  9. HYDROCODONE AP [Concomitant]
  10. PLAVIX [Concomitant]
  11. LOTENSIN [Concomitant]
  12. TRICOR [Concomitant]
  13. ZIAC [Concomitant]
  14. ACTIQ [Concomitant]

REACTIONS (1)
  - LOSS OF CONSCIOUSNESS [None]
